FAERS Safety Report 7880289-7 (Version None)
Quarter: 2011Q4

REPORT INFORMATION
  Report Type: 
  Country: None (occurrence: None)
  Receive Date: 20111101
  Receipt Date: 20111031
  Transmission Date: 20120403
  Serious: No
  Sender: FDA-Public Use
  Company Number: US-PFIZER INC-2011266285

PATIENT
  Sex: Female
  Weight: 57.596 kg

DRUGS (4)
  1. IBUPROFEN (ADVIL) [Suspect]
     Indication: ARTHRITIS
     Dosage: 200 MG, DAILY
     Route: 048
     Dates: end: 20110801
  2. VITAMIN D [Concomitant]
     Indication: VITAMIN SUPPLEMENTATION
     Dosage: UNK
  3. LEVOTHYROXINE SODIUM [Concomitant]
     Indication: THYROIDECTOMY
     Dosage: HALF A TABLET OF 0.025MG, DAILY
     Route: 048
  4. THYROID TAB [Concomitant]
     Indication: THYROIDECTOMY
     Dosage: 60 MG, DAILY

REACTIONS (2)
  - BACK PAIN [None]
  - CHEST PAIN [None]
